FAERS Safety Report 11807488 (Version 2)
Quarter: 2016Q1

REPORT INFORMATION
  Report Type: Spontaneous
  Country: US (occurrence: US)
  Receive Date: 20151207
  Receipt Date: 20160225
  Transmission Date: 20160525
  Serious: Yes (Other)
  Sender: FDA-Public Use
  Company Number: US-ROXANE LABORATORIES, INC.-2015-RO-02019RO

PATIENT
  Age: 57 Year
  Sex: Female
  Weight: 60 kg

DRUGS (17)
  1. TYLENOL [Concomitant]
     Active Substance: ACETAMINOPHEN
     Route: 065
  2. PREDNISONE. [Concomitant]
     Active Substance: PREDNISONE
     Route: 065
  3. NITROSTAT [Concomitant]
     Active Substance: NITROGLYCERIN
     Route: 065
  4. NOVOLOG [Concomitant]
     Active Substance: INSULIN ASPART
     Route: 065
  5. MYCOPHENOLATE MOFETIL. [Suspect]
     Active Substance: MYCOPHENOLATE MOFETIL
     Indication: RENAL TRANSPLANT
     Dosage: 500 MG
     Route: 048
     Dates: start: 20141126
  6. MAG OXIDE [Concomitant]
     Active Substance: MAGNESIUM OXIDE
     Route: 065
  7. LANTUS [Concomitant]
     Active Substance: INSULIN GLARGINE
     Route: 065
  8. PREMARIN [Concomitant]
     Active Substance: ESTROGENS, CONJUGATED
     Route: 065
  9. ZOCOR [Concomitant]
     Active Substance: SIMVASTATIN
     Route: 065
  10. DOCUSATE [Concomitant]
     Active Substance: DOCUSATE
     Route: 065
  11. BASILIXIMAB [Suspect]
     Active Substance: BASILIXIMAB
     Indication: RENAL TRANSPLANT
     Dosage: 40 MG
     Route: 065
     Dates: start: 20130630, end: 20140704
  12. CLONIDINE HYDROCHLORIDE. [Concomitant]
     Active Substance: CLONIDINE HYDROCHLORIDE
     Route: 065
  13. PLAVIX [Concomitant]
     Active Substance: CLOPIDOGREL BISULFATE
     Route: 065
  14. DIOVAN [Concomitant]
     Active Substance: VALSARTAN
     Route: 065
  15. K-PHOS NEUTRAL [Concomitant]
     Active Substance: POTASSIUM PHOSPHATE\SODIUM PHOSPHATE
     Route: 065
  16. TACROLIMUS. [Suspect]
     Active Substance: TACROLIMUS
     Indication: RENAL TRANSPLANT
     Dosage: 1.5 MG
     Route: 048
     Dates: start: 20150825
  17. PANTOPRAZOLE SODIUM. [Concomitant]
     Active Substance: PANTOPRAZOLE SODIUM
     Route: 065

REACTIONS (2)
  - Klebsiella infection [Recovered/Resolved]
  - Urinary tract infection staphylococcal [Recovered/Resolved]

NARRATIVE: CASE EVENT DATE: 20150828
